FAERS Safety Report 6344815-1 (Version None)
Quarter: 2009Q3

REPORT INFORMATION
  Report Type: 
  Country: None (occurrence: None)
  Receive Date: 20090904
  Receipt Date: 20090825
  Transmission Date: 20100115
  Serious: Yes (Death, Hospitalization)
  Sender: FDA-Public Use
  Company Number: 2009AL003460

PATIENT
  Sex: Male

DRUGS (10)
  1. DIGOXIN [Suspect]
     Dosage: PO
     Route: 048
     Dates: start: 20060101
  2. COREG [Concomitant]
  3. LASIX [Concomitant]
  4. COUMADIN [Concomitant]
  5. LANOXIN [Concomitant]
  6. CAPTOPRIL [Concomitant]
  7. ALDACTONE [Concomitant]
  8. ZITHROMAX [Concomitant]
  9. PREDNISONE TAB [Concomitant]
  10. COMBIVENT [Concomitant]

REACTIONS (2)
  - INJURY [None]
  - PAIN [None]
